FAERS Safety Report 6313737-4 (Version None)
Quarter: 2009Q3

REPORT INFORMATION
  Report Type: 
  Country: None (occurrence: None)
  Receive Date: 20090817
  Receipt Date: 20090817
  Transmission Date: 20100115
  Serious: Yes (Other)
  Sender: FDA-Public Use
  Company Number: None

PATIENT
  Age: 50 Year
  Sex: Male
  Weight: 67.1324 kg

DRUGS (2)
  1. BUSPIRONE HCL [Suspect]
     Indication: INSOMNIA
     Dates: start: 20090707, end: 20090815
  2. BUSPIRONE HCL [Suspect]
     Indication: MAJOR DEPRESSION
     Dates: start: 20090707, end: 20090815

REACTIONS (4)
  - DIZZINESS [None]
  - NAUSEA [None]
  - PRODUCT CONTAMINATION [None]
  - SPEECH DISORDER [None]
